FAERS Safety Report 7107604-6 (Version None)
Quarter: 2010Q4

REPORT INFORMATION
  Report Type: 
  Country: None (occurrence: None)
  Receive Date: 20101117
  Receipt Date: 20101109
  Transmission Date: 20110411
  Serious: Yes (Hospitalization, Other)
  Sender: FDA-Public Use
  Company Number: US-US-EMD SERONO, INC.-231511J09USA

PATIENT
  Sex: Female
  Weight: 80 kg

DRUGS (4)
  1. REBIF [Suspect]
     Indication: MULTIPLE SCLEROSIS
     Route: 058
     Dates: start: 20090123
  2. ALTACE [Concomitant]
     Indication: HYPERTENSION
     Route: 065
  3. CLONAZEPAM [Concomitant]
     Route: 065
  4. STEROIDS [Concomitant]
     Route: 065
     Dates: start: 20090101

REACTIONS (11)
  - BURNING SENSATION [None]
  - CHEST PAIN [None]
  - DIZZINESS [None]
  - HYPERTENSION [None]
  - MENORRHAGIA [None]
  - MIGRAINE [None]
  - PAIN [None]
  - STRESS [None]
  - SUICIDAL IDEATION [None]
  - VISION BLURRED [None]
  - WEIGHT INCREASED [None]
